FAERS Safety Report 16882327 (Version 1)
Quarter: 2019Q4

REPORT INFORMATION
  Report Type: Spontaneous
  Country: US (occurrence: US)
  Receive Date: 20191003
  Receipt Date: 20191003
  Transmission Date: 20200122
  Serious: Yes (Death, Other)
  Sender: FDA-Public Use
  Company Number: None

PATIENT
  Age: 75 Year
  Sex: Male

DRUGS (1)
  1. WARFARIN [Suspect]
     Active Substance: WARFARIN

REACTIONS (8)
  - Nausea [None]
  - Subarachnoid haemorrhage [None]
  - Headache [None]
  - Asthenia [None]
  - Klebsiella infection [None]
  - Hyperhidrosis [None]
  - Neck pain [None]
  - CSF culture positive [None]

NARRATIVE: CASE EVENT DATE: 20190623
